FAERS Safety Report 23306737 (Version 3)
Quarter: 2024Q1

REPORT INFORMATION
  Report Type: Spontaneous
  Country: FR (occurrence: FR)
  Receive Date: 20231218
  Receipt Date: 20240216
  Transmission Date: 20240410
  Serious: Yes (Hospitalization)
  Sender: FDA-Public Use
  Company Number: FR-AUROBINDO-AUR-APL-2023-037194

PATIENT
  Age: 65 Year
  Sex: Female
  Weight: 48 kg

DRUGS (8)
  1. BACTRIM [Suspect]
     Active Substance: SULFAMETHOXAZOLE\TRIMETHOPRIM
     Indication: Product used for unknown indication
     Dosage: UNK
     Route: 065
  2. LENALIDOMIDE [Suspect]
     Active Substance: LENALIDOMIDE
     Indication: Follicular lymphoma
     Dosage: 20 MG, QD, ONCE A DAY (FOR DAY1 TO 21 FOR 21 CYCLES)
     Route: 048
     Dates: start: 20230301, end: 20230314
  3. LENALIDOMIDE [Suspect]
     Active Substance: LENALIDOMIDE
     Dosage: UNK
     Route: 048
  4. RITUXIMAB [Suspect]
     Active Substance: RITUXIMAB
     Indication: Follicular lymphoma
     Dosage: 375 MG/M2 (FOR 5 CYCLES (540 MG)
     Route: 042
     Dates: start: 20230302, end: 20230314
  5. RITUXIMAB [Suspect]
     Active Substance: RITUXIMAB
     Dosage: UNK
     Route: 042
  6. TAFASITAMAB [Suspect]
     Active Substance: TAFASITAMAB
     Indication: Follicular lymphoma
     Dosage: 12 MG/KG, EVERY WEEK(THE FIRST 3 CYCLES AND Q2W THEREAFTER 560MG)
     Route: 042
     Dates: start: 20230301, end: 20230314
  7. TAFASITAMAB [Suspect]
     Active Substance: TAFASITAMAB
     Dosage: 560 MG, QW
     Route: 042
     Dates: start: 20230301, end: 20230308
  8. VALACYCLOVIR HYDROCHLORIDE [Suspect]
     Active Substance: VALACYCLOVIR HYDROCHLORIDE
     Indication: Product used for unknown indication
     Dosage: UNK
     Route: 048

REACTIONS (2)
  - Hyperthermia [Recovered/Resolved]
  - C-reactive protein increased [Unknown]

NARRATIVE: CASE EVENT DATE: 20230314
